FAERS Safety Report 16508481 (Version 1)
Quarter: 2019Q3

REPORT INFORMATION
  Report Type: Spontaneous
  Country: US (occurrence: US)
  Receive Date: 20190702
  Receipt Date: 20190702
  Transmission Date: 20191004
  Serious: No
  Sender: FDA-Public Use
  Company Number: US-GLENMARK PHARMACEUTICALS-2019GMK041119

PATIENT

DRUGS (1)
  1. FROVATRIPTAN SUCCINATE TABLETS, 2.5 MG [Suspect]
     Active Substance: FROVATRIPTAN SUCCINATE
     Indication: MIGRAINE
     Dosage: 2.5 MG, BID (1 TABLET, EVERY 12 HOURS)
     Route: 048
     Dates: end: 20190428

REACTIONS (6)
  - Vomiting [Unknown]
  - Migraine [Unknown]
  - Drug ineffective [Unknown]
  - Suspected counterfeit product [Unknown]
  - Product blister packaging issue [Unknown]
  - Product physical issue [Unknown]

NARRATIVE: CASE EVENT DATE: 201904
